FAERS Safety Report 20703694 (Version 5)
Quarter: 2022Q4

REPORT INFORMATION
  Report Type: Report from Study
  Country: US (occurrence: US)
  Receive Date: 20220413
  Receipt Date: 20221207
  Transmission Date: 20230113
  Serious: Yes (Other)
  Sender: FDA-Public Use
  Company Number: US-BEIGENE, LTD-BGN-2022-003558

PATIENT

DRUGS (3)
  1. BRUKINSA [Suspect]
     Active Substance: ZANUBRUTINIB
     Indication: Waldenstrom^s macroglobulinaemia
     Dosage: 80 MILLIGRAM, BID
     Route: 048
  2. BRUKINSA [Suspect]
     Active Substance: ZANUBRUTINIB
     Dosage: 80 MILLIGRAM, BID
     Route: 048
  3. BRUKINSA [Suspect]
     Active Substance: ZANUBRUTINIB
     Dosage: 80 MILLIGRAM, BID
     Route: 048

REACTIONS (13)
  - Haemorrhage [Unknown]
  - Haemorrhage subcutaneous [Unknown]
  - Eye haemorrhage [Unknown]
  - Macular degeneration [Unknown]
  - Blindness [Unknown]
  - Skin discolouration [Recovered/Resolved]
  - Ocular discomfort [Unknown]
  - Skin neoplasm excision [Unknown]
  - Contusion [Unknown]
  - Abdominal discomfort [Unknown]
  - Adverse reaction [Unknown]
  - Prescribed underdose [Unknown]
  - Product use complaint [Unknown]
